FAERS Safety Report 16507766 (Version 1)
Quarter: 2019Q3

REPORT INFORMATION
  Report Type: Spontaneous
  Country: US (occurrence: US)
  Receive Date: 20190702
  Receipt Date: 20190702
  Transmission Date: 20191004
  Serious: No
  Sender: FDA-Public Use
  Company Number: US-GLAXOSMITHKLINE-US2019115595

PATIENT
  Age: 44 Year
  Sex: Female

DRUGS (2)
  1. ABREVA [Suspect]
     Active Substance: DOCOSANOL
     Indication: ORAL HERPES
     Dosage: 4 OR 5 TIMES A DAY
     Route: 061
  2. ABREVA [Suspect]
     Active Substance: DOCOSANOL
     Dosage: 4 OR 5 TIMES A DAY

REACTIONS (3)
  - Incorrect product administration duration [Unknown]
  - Wrong technique in product usage process [Unknown]
  - Inappropriate schedule of product administration [Unknown]
